FAERS Safety Report 7487627-8 (Version None)
Quarter: 2011Q2

REPORT INFORMATION
  Report Type: 
  Country: None (occurrence: None)
  Receive Date: 20110518
  Receipt Date: 20110513
  Transmission Date: 20111010
  Serious: Yes (Other)
  Sender: FDA-Public Use
  Company Number: US-SANOFI-AVENTIS-2011SA017846

PATIENT
  Sex: Female

DRUGS (11)
  1. VITAMIN D [Concomitant]
  2. MULTAQ [Suspect]
     Route: 048
     Dates: start: 20110101, end: 20110201
  3. SYNTHROID [Concomitant]
     Route: 065
  4. XANAX [Concomitant]
     Indication: SLEEP DISORDER
  5. ZESTRIL [Concomitant]
  6. MULTAQ [Suspect]
     Route: 048
     Dates: start: 20110301
  7. COUMADIN [Suspect]
     Route: 065
  8. MULTAQ [Suspect]
     Route: 048
     Dates: start: 20110301
  9. MULTAQ [Suspect]
     Indication: ATRIAL FIBRILLATION
     Route: 048
     Dates: start: 20110101, end: 20110201
  10. SYNTHROID [Concomitant]
     Route: 065
  11. CALCIUM CARBONATE [Concomitant]

REACTIONS (15)
  - ABNORMAL DREAMS [None]
  - DYSPNOEA [None]
  - ALOPECIA [None]
  - HYPOTHYROIDISM [None]
  - SWELLING [None]
  - MUSCLE SPASMS [None]
  - WEIGHT INCREASED [None]
  - FEELING ABNORMAL [None]
  - INSOMNIA [None]
  - CONTUSION [None]
  - INTERNATIONAL NORMALISED RATIO INCREASED [None]
  - ATRIAL FIBRILLATION [None]
  - DEPRESSION [None]
  - MEMORY IMPAIRMENT [None]
  - DYSPHONIA [None]
